FAERS Safety Report 6115069-6 (Version None)
Quarter: 2009Q1

REPORT INFORMATION
  Report Type: 
  Country: None (occurrence: None)
  Receive Date: 20090313
  Receipt Date: 20090310
  Transmission Date: 20090719
  Serious: Yes (Hospitalization)
  Sender: FDA-Public Use
  Company Number: B0561327A

PATIENT
  Age: 78 Year
  Sex: Female

DRUGS (3)
  1. ZANTAC [Suspect]
     Dosage: 50MG TWICE PER DAY
     Dates: start: 20090124, end: 20090220
  2. NEUTROGIN [Concomitant]
     Indication: NEUTROPENIA
     Dosage: 250MCG PER DAY
     Dates: start: 20090126, end: 20090130
  3. FOY [Concomitant]
     Indication: DISSEMINATED INTRAVASCULAR COAGULATION
     Dosage: 1000MCG PER DAY
     Route: 042
     Dates: start: 20090124, end: 20090202

REACTIONS (3)
  - ANAEMIA [None]
  - HAEMOLYTIC ANAEMIA [None]
  - SEPTIC SHOCK [None]
